FAERS Safety Report 4751048-9 (Version None)
Quarter: 2005Q3

REPORT INFORMATION
  Report Type: 
  Country: None (occurrence: None)
  Receive Date: 20050824
  Receipt Date: 20050629
  Transmission Date: 20060218
  Serious: No
  Sender: FDA-Public Use
  Company Number: US-GLAXOSMITHKLINE-A0564615A

PATIENT
  Age: 25 Year
  Sex: Male

DRUGS (2)
  1. EPZICOM [Suspect]
     Indication: HIV INFECTION
     Dosage: 1TAB AT NIGHT
     Route: 048
     Dates: start: 20050610
  2. SUSTIVA [Concomitant]

REACTIONS (2)
  - FATIGUE [None]
  - WEIGHT DECREASED [None]
